FAERS Safety Report 8069538-2 (Version None)
Quarter: 2012Q1

REPORT INFORMATION
  Report Type: 
  Country: None (occurrence: None)
  Receive Date: 20120125
  Receipt Date: 20120113
  Transmission Date: 20120608
  Serious: Yes (Death, Hospitalization, Other)
  Sender: FDA-Public Use
  Company Number: US-SANOFI-AVENTIS-A03200607586

PATIENT
  Age: 74 Year
  Sex: Male

DRUGS (27)
  1. CLOPIDOGREL BISULFATE [Suspect]
     Indication: STENT PLACEMENT
     Dosage: UNIT DOSE: 75 MG
     Route: 048
     Dates: start: 20021101
  2. CLOPIDOGREL BISULFATE [Suspect]
     Route: 048
     Dates: start: 20030702
  3. TOPROL-XL [Concomitant]
  4. ZOCOR [Concomitant]
  5. NORVASC [Concomitant]
  6. TIMOPTIC [Concomitant]
  7. CLOPIDOGREL BISULFATE [Suspect]
     Route: 048
     Dates: start: 20030702
  8. VITAMIN TAB [Concomitant]
  9. ASPIRIN [Suspect]
     Route: 048
     Dates: start: 20021101
  10. TERAZOSIN HCL [Concomitant]
  11. LASIX [Concomitant]
  12. PROCARDIA [Concomitant]
  13. PILOCARPINE [Concomitant]
  14. CLOPIDOGREL BISULFATE [Suspect]
     Route: 048
     Dates: start: 20030701, end: 20030701
  15. PREVACID [Concomitant]
  16. CLOPIDOGREL BISULFATE [Suspect]
     Route: 048
     Dates: start: 20030701, end: 20030701
  17. LANOXIN [Concomitant]
  18. BEXTRA [Concomitant]
  19. DIGOXIN [Concomitant]
  20. INFLUENZA VACCINE [Concomitant]
     Dates: start: 20031016, end: 20031016
  21. CLOPIDOGREL BISULFATE [Suspect]
     Dosage: UNIT DOSE: 75 MG
     Route: 048
     Dates: start: 20021101
  22. COZAAR [Concomitant]
  23. SKELAXIN [Concomitant]
  24. HYTRIN [Concomitant]
     Route: 048
     Dates: start: 20020530
  25. ASPIRIN [Suspect]
     Indication: STENT PLACEMENT
     Route: 048
     Dates: start: 20021101
  26. CELEBREX [Concomitant]
  27. METHYLPREDNISOLONE [Concomitant]

REACTIONS (10)
  - SUBDURAL HAEMATOMA [None]
  - BRAIN HERNIATION [None]
  - BRAIN STEM SYNDROME [None]
  - COMA [None]
  - POSTURING [None]
  - RESPIRATORY FAILURE [None]
  - CHOLECYSTITIS ACUTE [None]
  - BRAIN INJURY [None]
  - BILIARY COLIC [None]
  - GASTRITIS [None]
